FAERS Safety Report 8615505-7 (Version None)
Quarter: 2012Q3

REPORT INFORMATION
  Report Type: 
  Country: None (occurrence: None)
  Receive Date: 20120823
  Receipt Date: 20120808
  Transmission Date: 20120928
  Serious: Yes (Hospitalization)
  Sender: FDA-Public Use
  Company Number: US-BAYER-2011-124193

PATIENT
  Age: 27 Year
  Sex: Female
  Weight: 75 kg

DRUGS (13)
  1. YASMIN [Suspect]
     Indication: ACNE
  2. ISOTRETINOIN [Concomitant]
     Dosage: UNK
     Dates: start: 20091123, end: 20100521
  3. ACCUTANE [Concomitant]
     Dosage: UNK
     Dates: start: 20091223, end: 20100208
  4. AQUAPHOR [PARAFFIN] [Concomitant]
     Route: 061
  5. DROSPIRENONE AND ETHINYL ESTRADIOL [Suspect]
     Indication: ORAL CONTRACEPTION
     Dosage: UNK
     Dates: start: 20090801, end: 20100501
  6. YASMIN [Suspect]
     Indication: ORAL CONTRACEPTION
     Dosage: UNK
     Dates: start: 20090801, end: 20100501
  7. HYDROCODONE [Concomitant]
     Indication: PAIN
     Dosage: UNK
     Dates: start: 20100401
  8. WARFARIN SODIUM [Concomitant]
     Dosage: UNK
     Dates: start: 20100303, end: 20100701
  9. NYSTATIN [Concomitant]
     Dosage: 100000UNIT/GM
     Route: 061
  10. DROSPIRENONE AND ETHINYL ESTRADIOL [Suspect]
     Indication: ACNE
  11. AMOXICILLIN [Concomitant]
     Indication: WISDOM TEETH REMOVAL
     Dosage: UNK
     Dates: start: 20100401
  12. IBUPROFEN [Concomitant]
  13. CETAPHIL [CETYL ALCOHOL,PROPYLENE GLYCOL,STEARYL ALCOHOL] [Concomitant]

REACTIONS (4)
  - PULMONARY EMBOLISM [None]
  - CHEST PAIN [None]
  - DYSPNOEA [None]
  - DEEP VEIN THROMBOSIS [None]
